FAERS Safety Report 7742597-X (Version None)
Quarter: 2011Q3

REPORT INFORMATION
  Report Type: 
  Country: None (occurrence: None)
  Receive Date: 20110912
  Receipt Date: 20110901
  Transmission Date: 20111222
  Serious: Yes (Other)
  Sender: FDA-Public Use
  Company Number: PHHY2011JP29404

PATIENT
  Age: 1 Day
  Sex: Female

DRUGS (1)
  1. FEMARA [Suspect]

REACTIONS (1)
  - CONGENITAL HAND MALFORMATION [None]
